FAERS Safety Report 15704277 (Version 1)
Quarter: 2018Q4

REPORT INFORMATION
  Report Type: Spontaneous
  Country: US (occurrence: US)
  Receive Date: 20181210
  Receipt Date: 20181210
  Transmission Date: 20190205
  Serious: Yes (Other)
  Sender: FDA-Public Use
  Company Number: None

PATIENT
  Age: 80 Year
  Sex: Male
  Weight: 71.1 kg

DRUGS (2)
  1. GAMUNEX-C [Suspect]
     Active Substance: HUMAN IMMUNOGLOBULIN G
     Indication: POST POLIO SYNDROME
     Dosage: ?          OTHER FREQUENCY:3 WEEKS;?
     Route: 041
     Dates: start: 20181130, end: 20181130
  2. GAMUNEX-C [Suspect]
     Active Substance: HUMAN IMMUNOGLOBULIN G
     Indication: POST POLIO SYNDROME
     Dosage: ?          OTHER FREQUENCY:3 WEEKS;?
     Route: 041
     Dates: start: 20181130, end: 20181130

REACTIONS (1)
  - Rash maculo-papular [None]

NARRATIVE: CASE EVENT DATE: 20181130
